FAERS Safety Report 7268612-8 (Version None)
Quarter: 2011Q1

REPORT INFORMATION
  Report Type: 
  Country: None (occurrence: None)
  Receive Date: 20110201
  Receipt Date: 20110124
  Transmission Date: 20110831
  Serious: Yes (Hospitalization, Other)
  Sender: FDA-Public Use
  Company Number: JP-AMGEN-JPNCT2010003465

PATIENT
  Age: 73 Year
  Sex: Male
  Weight: 52 kg

DRUGS (5)
  1. IRINOTECAN HYDROCHLORIDE [Suspect]
     Indication: COLORECTAL CANCER
     Route: 041
     Dates: start: 20101013
  2. SEROTONE [Concomitant]
     Route: 042
  3. PANITUMUMAB [Suspect]
     Indication: COLORECTAL CANCER
     Dosage: 6 MG/KG, Q2WK
     Route: 041
     Dates: start: 20101013, end: 20101115
  4. IRINOTECAN HYDROCHLORIDE [Suspect]
     Route: 041
     Dates: start: 20101013, end: 20101115
  5. CORTICOSTEROIDS [Concomitant]
     Indication: PROPHYLAXIS
     Route: 065

REACTIONS (3)
  - RASH [None]
  - FEBRILE NEUTROPENIA [None]
  - DIARRHOEA [None]
